FAERS Safety Report 10908515 (Version 1)
Quarter: 2015Q1

REPORT INFORMATION
  Report Type: Spontaneous
  Country: CO (occurrence: None)
  Receive Date: 20150309
  Receipt Date: 20150309
  Transmission Date: 20150721
  Serious: Yes (Hospitalization)
  Sender: FDA-Public Use
  Company Number: NSR_01993_2015

PATIENT
  Age: 46 Year
  Sex: Female

DRUGS (1)
  1. METOCLOPRAMIDE (METOCLOPRAMIDE) [Suspect]
     Active Substance: METOCLOPRAMIDE
     Indication: PRODUCT USED FOR UNKNOWN INDICATION
     Dosage: (DF)?

REACTIONS (9)
  - Nausea [None]
  - Vomiting [None]
  - Nodal rhythm [None]
  - Cyanosis [None]
  - Bradycardia [None]
  - Tongue oedema [None]
  - Abdominal pain [None]
  - Stridor [None]
  - Abdominal distension [None]
